FAERS Safety Report 23224317 (Version 1)
Quarter: 2023Q4

REPORT INFORMATION
  Report Type: Spontaneous
  Country: JP (occurrence: JP)
  Receive Date: 20231124
  Receipt Date: 20231124
  Transmission Date: 20240110
  Serious: Yes (Other)
  Sender: FDA-Public Use
  Company Number: JP-GILEAD-2023-0645686

PATIENT
  Age: 65 Year
  Sex: Female

DRUGS (1)
  1. GENVOYA [Interacting]
     Active Substance: COBICISTAT\ELVITEGRAVIR\EMTRICITABINE\TENOFOVIR ALAFENAMIDE FUMARATE
     Indication: HIV infection
     Dosage: UNK
     Route: 048

REACTIONS (8)
  - Blood HIV RNA increased [Recovered/Resolved]
  - Malaise [Unknown]
  - CD4 lymphocytes decreased [Recovered/Resolved]
  - Platelet count decreased [Recovered/Resolved]
  - Drug ineffective [Unknown]
  - Therapeutic response decreased [Unknown]
  - Treatment noncompliance [Unknown]
  - Drug interaction [Unknown]

NARRATIVE: CASE EVENT DATE: 20230928
